FAERS Safety Report 6064784-1 (Version None)
Quarter: 2009Q1

REPORT INFORMATION
  Report Type: 
  Country: None (occurrence: None)
  Receive Date: 20090204
  Receipt Date: 20090123
  Transmission Date: 20090719
  Serious: Yes (Hospitalization)
  Sender: FDA-Public Use
  Company Number: JP-BRISTOL-MYERS SQUIBB COMPANY-14481899

PATIENT
  Age: 67 Year
  Sex: Male
  Weight: 96 kg

DRUGS (10)
  1. ABILIFY [Suspect]
     Indication: SCHIZOPHRENIA
     Dosage: 6DEC-09JAN-12MG,10JAN/11JUN08-18MG;ORAL,12JUN/04JUL08-30MG,05JUL08-ONG 24MG 154 DAYS
     Route: 048
     Dates: start: 20080110, end: 20080611
  2. BIPERIDEN HYDROCHLORIDE TAB [Concomitant]
     Dates: end: 20080913
  3. NITRAZEPAM [Concomitant]
     Dosage: FORMULATION -TABS
     Dates: end: 20080913
  4. ETIZOLAM [Concomitant]
     Dosage: FORMULATION-TABS
     Route: 048
  5. VALPROATE SODIUM [Concomitant]
     Dates: start: 20080612, end: 20080922
  6. RISPERIDONE [Concomitant]
     Dates: start: 20080705
  7. LORMETAZEPAM [Concomitant]
     Dates: start: 20080914
  8. HALOPERIDOL [Concomitant]
     Dosage: FORMULATION-TABS
     Dates: end: 20080323
  9. POLYCARBOPHIL CALCIUM [Concomitant]
     Dates: end: 20080608
  10. MAGNESIUM OXIDE [Concomitant]
     Dates: end: 20080628

REACTIONS (4)
  - BLOOD CREATINE PHOSPHOKINASE INCREASED [None]
  - CONSTIPATION [None]
  - DELUSION [None]
  - HALLUCINATION [None]
